FAERS Safety Report 23872653 (Version 1)
Quarter: 2024Q2

REPORT INFORMATION
  Report Type: Spontaneous
  Country: PL (occurrence: PL)
  Receive Date: 20240520
  Receipt Date: 20240520
  Transmission Date: 20240715
  Serious: Yes (Other)
  Sender: FDA-Public Use
  Company Number: None

PATIENT
  Age: 73 Year
  Sex: Male
  Weight: 103 kg

DRUGS (2)
  1. VECTIBIX [Suspect]
     Active Substance: PANITUMUMAB
     Indication: Rectal cancer
     Dosage: 494 (NO UNIT); THERAPY ONGOING
     Route: 040
     Dates: start: 20191021, end: 20200131
  2. VECTIBIX [Suspect]
     Active Substance: PANITUMUMAB
     Dosage: 494 (NO UNIT); THERAPY ONGOING
     Route: 040
     Dates: start: 20191021, end: 20200131

REACTIONS (2)
  - Dermatitis [Recovering/Resolving]
  - Conjunctivitis [Recovering/Resolving]

NARRATIVE: CASE EVENT DATE: 20200420
